FAERS Safety Report 9843716 (Version 4)
Quarter: 2018Q1

REPORT INFORMATION
  Report Type: Spontaneous
  Country: US (occurrence: US)
  Receive Date: 20140126
  Receipt Date: 20180214
  Transmission Date: 20180509
  Serious: No
  Sender: FDA-Public Use
  Company Number: US-009507513-1401USA008814

PATIENT
  Age: 79 Year
  Sex: Female

DRUGS (6)
  1. CLONIDINE HYDROCHLORIDE. [Suspect]
     Active Substance: CLONIDINE HYDROCHLORIDE
  2. ASMANEX [Suspect]
     Active Substance: MOMETASONE FUROATE
     Dosage: 220MCG - ONE INHALATION/TWICE DAILY
     Route: 055
  3. [COMPOSITION UNSPECIFIED] [Suspect]
     Active Substance: UNSPECIFIED INGREDIENT
  4. VALSARTAN. [Concomitant]
     Active Substance: VALSARTAN
  5. ASMANEX [Suspect]
     Active Substance: MOMETASONE FUROATE
     Indication: SARCOIDOSIS
     Dosage: ONE PUFF TWICE DAY
     Route: 055
  6. ASMANEX [Suspect]
     Active Substance: MOMETASONE FUROATE
     Dosage: 1 PUFF TWICE DAILY
     Route: 055

REACTIONS (8)
  - Adverse event [Unknown]
  - Drug dose omission [Unknown]
  - Product quality control issue [Unknown]
  - Product quality issue [Unknown]
  - Cardiac disorder [Unknown]
  - Dyspnoea [Unknown]
  - Drug dose omission [Unknown]
  - Product use in unapproved indication [Unknown]

NARRATIVE: CASE EVENT DATE: 201801
